FAERS Safety Report 9772119 (Version 1)
Quarter: 2013Q4

REPORT INFORMATION
  Report Type: Spontaneous
  Country: US (occurrence: None)
  Receive Date: 20131218
  Receipt Date: 20131218
  Transmission Date: 20140711
  Serious: Yes (Other)
  Sender: FDA-Public Use
  Company Number: None

PATIENT
  Age: 34 Year
  Sex: Female
  Weight: 104.33 kg

DRUGS (1)
  1. INVEGA [Suspect]
     Dosage: 1 3MG IN TH AM A 6MG PM
     Route: 048
     Dates: start: 20130604, end: 20131209

REACTIONS (2)
  - Amnesia [None]
  - Abnormal behaviour [None]
